FAERS Safety Report 8091808-2 (Version None)
Quarter: 2012Q1

REPORT INFORMATION
  Report Type: 
  Country: None (occurrence: None)
  Receive Date: 20120129
  Receipt Date: 20111113
  Transmission Date: 20120608
  Serious: No
  Sender: FDA-Public Use
  Company Number: US-ABBOTT-11P-163-0874034-00

PATIENT
  Age: 85 Year
  Sex: Female

DRUGS (15)
  1. TOPROL-XL [Concomitant]
     Indication: HYPERTENSION
  2. LISINOPRIL [Concomitant]
     Indication: HYPERTENSION
     Dosage: AT BEDTIME
  3. POTASSIUM [Concomitant]
     Indication: SUPPLEMENTATION THERAPY
     Dosage: 2 TABS AT LUNCH 2 TABS AT SUPPER
  4. SYNTHROID [Concomitant]
     Indication: HYPOTHYROIDISM
  5. CANASA [Concomitant]
     Indication: DRUG THERAPY
     Route: 054
  6. HUMIRA [Suspect]
     Indication: COLITIS ULCERATIVE
     Dates: start: 20110902
  7. FOSAMAX [Concomitant]
     Indication: BONE DISORDER
  8. VIALDI [Concomitant]
     Indication: COLITIS
  9. BIACTIVE [Concomitant]
     Indication: BONE DISORDER
  10. VITAMIN FOR EYES [Concomitant]
     Indication: SUPPLEMENTATION THERAPY
  11. IRON SUPPLEMENT [Concomitant]
     Indication: PRODUCT USED FOR UNKNOWN INDICATION
  12. LIPITOR [Concomitant]
     Indication: BLOOD CHOLESTEROL INCREASED
  13. PROTONIX [Concomitant]
     Indication: GASTROOESOPHAGEAL REFLUX DISEASE
  14. IMURAN [Concomitant]
     Indication: COLITIS
  15. ASCORBIC ACID [Concomitant]
     Indication: SUPPLEMENTATION THERAPY

REACTIONS (1)
  - INCREASED TENDENCY TO BRUISE [None]
